FAERS Safety Report 7774465-1 (Version None)
Quarter: 2011Q3

REPORT INFORMATION
  Report Type: 
  Country: None (occurrence: None)
  Receive Date: 20110923
  Receipt Date: 20110914
  Transmission Date: 20111222
  Serious: Yes (Other)
  Sender: FDA-Public Use
  Company Number: JP-ROCHE-780879

PATIENT
  Sex: Male
  Weight: 66 kg

DRUGS (11)
  1. PROGRAF [Concomitant]
     Route: 048
     Dates: start: 20080326, end: 20080805
  2. CYTOTEC [Concomitant]
     Route: 048
  3. URSO 250 [Concomitant]
     Route: 048
  4. TOCILIZUMAB [Suspect]
     Dosage: ROUTE: INTRAVENOUS DRIP FORM: INJECTION
     Route: 042
     Dates: start: 20091209, end: 20100512
  5. PROGRAF [Concomitant]
     Route: 048
     Dates: start: 20080806
  6. VOLTAREN [Concomitant]
     Route: 048
  7. FOLIC ACID [Concomitant]
     Route: 048
     Dates: end: 20080513
  8. PREDNISOLONE [Concomitant]
     Route: 048
  9. TOCILIZUMAB [Suspect]
     Indication: RHEUMATOID ARTHRITIS
     Dosage: ROUTE: INTRAVENOUS DRIP FORM: INJECTION NOTE: 560-600 MG/4WEEKS
     Route: 042
     Dates: start: 20080514, end: 20091014
  10. PREDNISOLONE [Concomitant]
     Route: 048
  11. PREDNISOLONE [Concomitant]
     Route: 041

REACTIONS (2)
  - INTERSTITIAL LUNG DISEASE [None]
  - ANKLE FRACTURE [None]
